FAERS Safety Report 9742722 (Version 1)
Quarter: 2013Q4

REPORT INFORMATION
  Report Type: Spontaneous
  Country: US (occurrence: US)
  Receive Date: 20131210
  Receipt Date: 20131210
  Transmission Date: 20140711
  Serious: No
  Sender: FDA-Public Use
  Company Number: US-GILEAD-2009-0025807

PATIENT
  Age: 67 Year
  Sex: Male
  Weight: 72.7 kg

DRUGS (14)
  1. LETAIRIS [Suspect]
     Indication: PULMONARY ARTERIAL HYPERTENSION
     Route: 048
     Dates: start: 20090909
  2. LASIX [Concomitant]
  3. METOLAZONE [Concomitant]
  4. GLIMEPIRIDE [Concomitant]
  5. VITAMIN-E [Concomitant]
  6. PLAVIX [Concomitant]
  7. SELENIUM [Concomitant]
  8. ACTOMED PLUS [Concomitant]
  9. FISH OIL [Concomitant]
  10. GARLIC CAP [Concomitant]
  11. B-COMPLEX [Concomitant]
  12. ASA [Concomitant]
  13. POTASSIUM [Concomitant]
  14. VITAMIN D3 [Concomitant]

REACTIONS (1)
  - Generalised oedema [Not Recovered/Not Resolved]
